FAERS Safety Report 6103677-8 (Version None)
Quarter: 2009Q1

REPORT INFORMATION
  Report Type: 
  Country: None (occurrence: None)
  Receive Date: 20090227
  Receipt Date: 20090107
  Transmission Date: 20090719
  Serious: Yes (Other)
  Sender: FDA-Public Use
  Company Number: 2008EU002012

PATIENT
  Age: 80 Year
  Sex: Female

DRUGS (4)
  1. PROTOPIC [Suspect]
     Indication: ECZEMA
     Dosage: 0.1 %, PRN, TOPICAL
     Route: 061
     Dates: start: 20070701, end: 20080901
  2. FEXOFENADINE HCL [Concomitant]
  3. LIPOBASE (LOCOBASE) CREAM, UNKNOWN [Concomitant]
  4. BALNEUM PLUS (LAUROMACROGOL 400, GLYCINE MAX SEED OIL) [Concomitant]

REACTIONS (1)
  - SQUAMOUS CELL CARCINOMA OF SKIN [None]
